FAERS Safety Report 12212366 (Version 1)
Quarter: 2016Q1

REPORT INFORMATION
  Report Type: Spontaneous
  Country: JP (occurrence: JP)
  Receive Date: 20160325
  Receipt Date: 20160325
  Transmission Date: 20160526
  Serious: Yes (Other)
  Sender: FDA-Public Use
  Company Number: PHHY2016JP037463

PATIENT
  Age: 64 Year
  Sex: Male
  Weight: 68 kg

DRUGS (8)
  1. FIBROGAMMIN [Concomitant]
     Active Substance: FACTOR XIII CONCENTRATE (HUMAN)
     Dosage: 50 UNK, (50 U/KG)
     Route: 065
  2. FIBROGAMMIN [Concomitant]
     Active Substance: FACTOR XIII CONCENTRATE (HUMAN)
     Indication: ACQUIRED ANTITHROMBIN III DEFICIENCY
     Dosage: UNK
     Route: 065
  3. RITUXIMAB [Suspect]
     Active Substance: RITUXIMAB
     Indication: ACQUIRED ANTITHROMBIN III DEFICIENCY
     Route: 065
  4. PREDNISOLONE. [Suspect]
     Active Substance: PREDNISOLONE
     Indication: ACQUIRED ANTITHROMBIN III DEFICIENCY
     Dosage: 1 MG/KG, UNK
     Route: 065
  5. CYCLOPHOSPHAMIDE. [Suspect]
     Active Substance: CYCLOPHOSPHAMIDE
     Indication: ACQUIRED ANTITHROMBIN III DEFICIENCY
     Dosage: 50 MG, QD
     Route: 065
  6. CICLOSPORIN [Suspect]
     Active Substance: CYCLOSPORINE
     Indication: ACQUIRED ANTITHROMBIN III DEFICIENCY
     Dosage: 5 MG/KG, UNK
     Route: 065
  7. FIBROGAMMIN [Concomitant]
     Active Substance: FACTOR XIII CONCENTRATE (HUMAN)
     Dosage: 1200 U, UNK
     Route: 065
  8. FIBROGAMMIN [Concomitant]
     Active Substance: FACTOR XIII CONCENTRATE (HUMAN)
     Dosage: 60 OT, UNK
     Route: 065

REACTIONS (2)
  - Oesophageal squamous cell carcinoma recurrent [Recovered/Resolved]
  - Oesophageal squamous cell carcinoma stage II [Recovered/Resolved]
